FAERS Safety Report 9761004 (Version 1)
Quarter: 2013Q4

REPORT INFORMATION
  Report Type: Spontaneous
  Country: JP (occurrence: JP)
  Receive Date: 20131216
  Receipt Date: 20131216
  Transmission Date: 20140711
  Serious: Yes (Other)
  Sender: FDA-Public Use
  Company Number: JP-ACTAVIS-2013-22450

PATIENT
  Age: 50 Year
  Sex: Female

DRUGS (4)
  1. HYDROCORTISONE (UNKNOWN) [Suspect]
     Indication: HYPOPITUITARISM
     Dosage: 10 MG, UNKNOWN
     Route: 065
  2. EXENATIDE [Interacting]
     Indication: TYPE 2 DIABETES MELLITUS
     Dosage: 10 ?G,BID
     Route: 065
  3. EXENATIDE [Interacting]
     Dosage: 5 ?G,BID
     Route: 065
  4. L-THYROXINE                        /00068001/ [Concomitant]
     Indication: HYPOPITUITARISM
     Dosage: UNK
     Route: 065

REACTIONS (3)
  - Adrenal insufficiency [Recovered/Resolved]
  - Drug interaction [Recovered/Resolved]
  - Drug level decreased [Recovered/Resolved]
